FAERS Safety Report 18180121 (Version 3)
Quarter: 2020Q4

REPORT INFORMATION
  Report Type: Report from Study
  Country: US (occurrence: US)
  Receive Date: 20200821
  Receipt Date: 20201216
  Transmission Date: 20210113
  Serious: Yes (Other)
  Sender: FDA-Public Use
  Company Number: NVSC2020US227119

PATIENT
  Age: 60 Year
  Sex: Female

DRUGS (1)
  1. COSENTYX [Suspect]
     Active Substance: SECUKINUMAB
     Indication: ANKYLOSING SPONDYLITIS
     Dosage: 150 MG, UNKNOWN
     Route: 065

REACTIONS (9)
  - Musculoskeletal stiffness [Unknown]
  - Pain [Unknown]
  - Ankylosing spondylitis [Unknown]
  - Haemorrhoids [Unknown]
  - Constipation [Unknown]
  - Lip swelling [Unknown]
  - Diarrhoea [Unknown]
  - Therapeutic product effect decreased [Unknown]
  - Malaise [Unknown]
